FAERS Safety Report 25669876 (Version 2)
Quarter: 2025Q3

REPORT INFORMATION
  Report Type: Report from Study
  Country: US (occurrence: US)
  Receive Date: 20250812
  Receipt Date: 20250911
  Transmission Date: 20251020
  Serious: Yes (Other)
  Sender: ACADIA PHARMACEUTICALS
  Company Number: US-ACADIA PHARMACEUTICALS INC.-ACA-2025-PIM-009017

PATIENT
  Sex: Female

DRUGS (20)
  1. NUPLAZID [Suspect]
     Active Substance: PIMAVANSERIN TARTRATE
     Indication: Parkinson^s disease psychosis
     Dosage: 34 MILLIGRAM, QD
     Route: 048
  2. NOURIANZ [Suspect]
     Active Substance: ISTRADEFYLLINE
     Indication: Product used for unknown indication
     Route: 065
  3. VITAMIN B12 [Concomitant]
     Active Substance: CYANOCOBALAMIN
  4. LYRICA [Concomitant]
     Active Substance: PREGABALIN
  5. STOOL SOFTENER (DOCUSATE) [Concomitant]
     Active Substance: DOCUSATE
  6. SMOOTH LAX [Concomitant]
  7. LIDOCAINE [Concomitant]
     Active Substance: LIDOCAINE
  8. DICLOFENAC SODIUM [Concomitant]
     Active Substance: DICLOFENAC SODIUM
  9. ACETAMINOPHEN\HYDROCODONE [Concomitant]
     Active Substance: ACETAMINOPHEN\HYDROCODONE
  10. GABAPENTIN [Concomitant]
     Active Substance: GABAPENTIN
  11. MELOXICAM [Concomitant]
     Active Substance: MELOXICAM
  12. CICLOPIROX [Concomitant]
     Active Substance: CICLOPIROX
  13. MYRBETRIQ [Concomitant]
     Active Substance: MIRABEGRON
  14. CARBIDOPA, LEVODOPA AND ENTACAPONE [Concomitant]
     Active Substance: CARBIDOPA\ENTACAPONE\LEVODOPA
  15. NEUPRO [Concomitant]
     Active Substance: ROTIGOTINE
  16. RYTARY [Concomitant]
     Active Substance: CARBIDOPA\LEVODOPA
  17. PREGABALIN [Concomitant]
     Active Substance: PREGABALIN
  18. MIRABEGRON [Concomitant]
     Active Substance: MIRABEGRON
  19. CLONAZEPAM [Concomitant]
     Active Substance: CLONAZEPAM
  20. CARBIDOPA\LEVODOPA [Concomitant]
     Active Substance: CARBIDOPA\LEVODOPA

REACTIONS (4)
  - Hallucination [Unknown]
  - Delusion [Unknown]
  - Adverse drug reaction [Unknown]
  - Agitation [Unknown]
